FAERS Safety Report 24168649 (Version 1)
Quarter: 2024Q3

REPORT INFORMATION
  Report Type: Spontaneous
  Country: US (occurrence: None)
  Receive Date: 20240802
  Receipt Date: 20240802
  Transmission Date: 20241017
  Serious: No
  Sender: Public
  Company Number: None

PATIENT
  Age: 53 Year
  Sex: Female
  Weight: 80.1 kg

DRUGS (13)
  1. TYRVAYA [Suspect]
     Active Substance: VARENICLINE TARTRATE
     Indication: Dry eye
     Dosage: OTHER QUANTITY : 1 SPRAY(S)?FREQUENCY : TWICE A DAY?OTHER ROUTE : INSIDE EACH NOSTRILS OUTER EDGE?
     Route: 045
     Dates: start: 20240801, end: 20240802
  2. ESTRACE [Concomitant]
     Active Substance: ESTRADIOL
  3. METOPROLOL [Concomitant]
     Active Substance: METOPROLOL
  4. LISINOPRIL [Concomitant]
     Active Substance: LISINOPRIL
  5. VITAMIN D NOS [Concomitant]
     Active Substance: CHOLECALCIFEROL\ERGOCALCIFEROL
  6. ATORVASTATIN [Concomitant]
  7. CALCIUM [Concomitant]
     Active Substance: CALCIUM
  8. MONTELUKAST [Concomitant]
     Active Substance: MONTELUKAST SODIUM
  9. FLUTICASONE [Concomitant]
     Active Substance: FLUTICASONE
  10. MAGNESIUM [Concomitant]
     Active Substance: MAGNESIUM
  11. HERBALS\TURMERIC [Concomitant]
     Active Substance: HERBALS\TURMERIC
  12. VITAMIN C [Concomitant]
     Active Substance: ASCORBIC ACID
  13. RESTASIS [Suspect]
     Active Substance: CYCLOSPORINE

REACTIONS (7)
  - Panic attack [None]
  - Nasal discomfort [None]
  - Headache [None]
  - Pain [None]
  - Malaise [None]
  - Drug ineffective [None]
  - Product quality issue [None]

NARRATIVE: CASE EVENT DATE: 20240801
